FAERS Safety Report 12776358 (Version 2)
Quarter: 2016Q3

REPORT INFORMATION
  Report Type: Report from Study
  Country: TN (occurrence: TN)
  Receive Date: 20160923
  Receipt Date: 20160927
  Transmission Date: 20161109
  Serious: Yes (Hospitalization)
  Sender: FDA-Public Use
  Company Number: TN-ABBVIE-16K-160-1730325-00

PATIENT
  Age: 32 Year
  Sex: Female

DRUGS (1)
  1. HUMIRA [Suspect]
     Active Substance: ADALIMUMAB
     Indication: CROHN^S DISEASE
     Route: 058
     Dates: start: 201401, end: 201602

REACTIONS (7)
  - Dizziness [Recovered/Resolved]
  - Exposure during pregnancy [Unknown]
  - Vomiting [Recovered/Resolved]
  - Iron deficiency anaemia [Unknown]
  - Vaginal infection [Recovered/Resolved]
  - Crohn^s disease [Unknown]
  - Live birth [Unknown]

NARRATIVE: CASE EVENT DATE: 2015
